FAERS Safety Report 15839564 (Version 1)
Quarter: 2019Q1

REPORT INFORMATION
  Report Type: Spontaneous
  Country: US (occurrence: US)
  Receive Date: 20190117
  Receipt Date: 20190117
  Transmission Date: 20190417
  Serious: Yes (Other)
  Sender: FDA-Public Use
  Company Number: US-REGENERON PHARMACEUTICALS, INC.-2018-15193

PATIENT

DRUGS (3)
  1. EYLEA [Suspect]
     Active Substance: AFLIBERCEPT
     Dosage: RIGHT EYE (OD), EVERY 4 WEELS
     Route: 031
     Dates: start: 20180213, end: 20180213
  2. EYLEA [Suspect]
     Active Substance: AFLIBERCEPT
     Indication: NEOVASCULAR AGE-RELATED MACULAR DEGENERATION
     Dosage: RIGHT EYE (OD), EVERY 4 WEELS
     Route: 031
     Dates: start: 20180109, end: 20180109
  3. EYLEA [Suspect]
     Active Substance: AFLIBERCEPT
     Indication: CHOROIDAL NEOVASCULARISATION
     Dosage: RIGHT EYE (OD), EVERY 4 WEELS
     Route: 031
     Dates: start: 201307

REACTIONS (2)
  - Visual impairment [Recovering/Resolving]
  - Iridocyclitis [Unknown]

NARRATIVE: CASE EVENT DATE: 20180112
